FAERS Safety Report 20826169 (Version 2)
Quarter: 2022Q2

REPORT INFORMATION
  Report Type: Spontaneous
  Country: US (occurrence: US)
  Receive Date: 20220513
  Receipt Date: 20220607
  Transmission Date: 20220720
  Serious: Yes (Other)
  Sender: FDA-Public Use
  Company Number: US-PFIZER INC-2020226283

PATIENT
  Age: 54 Year
  Sex: Male

DRUGS (2)
  1. RAPAMUNE [Suspect]
     Active Substance: SIROLIMUS
     Indication: Heart transplant
     Dosage: 1 MG, 1X/DAY (1 MG, 90 DAY SUPPLY, 1 MG TAB PO QDAY,QTY 90)
     Route: 048
  2. RAPAMUNE [Suspect]
     Active Substance: SIROLIMUS
     Dosage: 0.5 MG, DAILY [TAB (0.5MG) Q DAY LUNCH]

REACTIONS (3)
  - Heart transplant [Unknown]
  - Off label use [Unknown]
  - Product use in unapproved indication [Unknown]
